FAERS Safety Report 5449918-1 (Version None)
Quarter: 2007Q3

REPORT INFORMATION
  Report Type: 
  Country: None (occurrence: None)
  Receive Date: 20070912
  Receipt Date: 20070907
  Transmission Date: 20080115
  Serious: Yes (Life-Threatening, Other)
  Sender: FDA-Public Use
  Company Number: US-NOVOPROD-267330

PATIENT

DRUGS (1)
  1. NOVOLOG MIX 70/30 [Suspect]
     Indication: INSULIN-REQUIRING TYPE II DIABETES MELLITUS
     Dosage: 5 IU, SINGLE
     Route: 058
     Dates: start: 20061101, end: 20061101

REACTIONS (3)
  - HEADACHE [None]
  - THROAT TIGHTNESS [None]
  - URTICARIA [None]
